FAERS Safety Report 5964226-8 (Version None)
Quarter: 2008Q4

REPORT INFORMATION
  Report Type: 
  Country: None (occurrence: None)
  Receive Date: 20081124
  Receipt Date: 20081119
  Transmission Date: 20090506
  Serious: Yes (Hospitalization, Other)
  Sender: FDA-Public Use
  Company Number: US-ABBOTT-08P-163-0488737-00

PATIENT
  Sex: Female
  Weight: 62.198 kg

DRUGS (8)
  1. HUMIRA [Suspect]
     Indication: CROHN'S DISEASE
     Route: 058
     Dates: start: 20071220, end: 20071220
  2. HUMIRA [Suspect]
     Route: 058
  3. HUMIRA [Suspect]
     Route: 058
  4. RABEPRAZOLE SODIUM [Concomitant]
     Indication: CROHN'S DISEASE
     Route: 048
  5. MESALAMINE [Concomitant]
     Indication: CROHN'S DISEASE
     Dosage: 2 TAB TID
     Route: 048
  6. PEROXITINE [Concomitant]
     Indication: DRUG USE FOR UNKNOWN INDICATION
     Route: 048
  7. ONDANSETRON [Concomitant]
     Indication: NAUSEA
     Route: 048
  8. ALBUTEROL SULFATE [Concomitant]
     Indication: DYSPNOEA
     Route: 055

REACTIONS (1)
  - INTESTINAL MASS [None]
